FAERS Safety Report 9417265 (Version 1)
Quarter: 2013Q3

REPORT INFORMATION
  Report Type: Spontaneous
  Country: HU (occurrence: HU)
  Receive Date: 20130724
  Receipt Date: 20130724
  Transmission Date: 20140515
  Serious: Yes (Hospitalization)
  Sender: FDA-Public Use
  Company Number: HU-TEVA-419667ISR

PATIENT
  Age: 43 Year
  Sex: Male

DRUGS (4)
  1. ATORVASTATIN [Suspect]
     Dosage: 20 MILLIGRAM DAILY;
     Route: 065
  2. FENOFIBRATE [Suspect]
     Dosage: 160 MILLIGRAM DAILY;
     Route: 065
  3. VARENICLINE [Concomitant]
     Route: 065
  4. NEBIVOLOL [Concomitant]
     Indication: HYPERTENSION
     Dosage: 2.5 MILLIGRAM DAILY;
     Route: 065

REACTIONS (1)
  - Myositis [Recovered/Resolved]
